FAERS Safety Report 15623632 (Version 2)
Quarter: 2018Q4

REPORT INFORMATION
  Report Type: Spontaneous
  Country: US (occurrence: US)
  Receive Date: 20181115
  Receipt Date: 20181119
  Transmission Date: 20190205
  Serious: No
  Sender: FDA-Public Use
  Company Number: US-BAYER-2018-212752

PATIENT
  Age: 26 Year
  Sex: Female

DRUGS (5)
  1. ALKA-SELTZER PLUS DAY AND NIGHT MULTI-SYMPTOM COLD AND FLU FORMULA [Suspect]
     Active Substance: ACETAMINOPHEN\DEXTROMETHORPHAN HYDROBROMIDE\DOXYLAMINE SUCCINATE\PHENYLEPHRINE
     Indication: NASOPHARYNGITIS
     Dosage: UNK
  2. CLARITIN [Suspect]
     Active Substance: LORATADINE
     Route: 065
  3. ALKA-SELTZER PLUS DAY AND NIGHT MULTI-SYMPTOM COLD AND FLU FORMULA [Suspect]
     Active Substance: ACETAMINOPHEN\DEXTROMETHORPHAN HYDROBROMIDE\DOXYLAMINE SUCCINATE\PHENYLEPHRINE
     Indication: ALLERGIC RESPIRATORY SYMPTOM
     Route: 048
     Dates: start: 20181114, end: 20181114
  4. BENADRYL [CAMPHOR,DIPHENHYDRAMINE HYDROCHLORIDE,ZINC OXIDE] [Concomitant]
     Indication: HYPERSENSITIVITY
  5. DECONGESTANT [PSEUDOEPHEDRINE HYDROCHLORIDE] [Concomitant]
     Indication: HYPERSENSITIVITY

REACTIONS (7)
  - Urticaria [Unknown]
  - Hypersensitivity [Recovering/Resolving]
  - Malaise [Unknown]
  - Feeling abnormal [Unknown]
  - Pruritus [Unknown]
  - Urticaria [Recovering/Resolving]
  - Gait disturbance [Unknown]

NARRATIVE: CASE EVENT DATE: 20181114
